FAERS Safety Report 5087942-1 (Version None)
Quarter: 2006Q3

REPORT INFORMATION
  Report Type: 
  Country: None (occurrence: None)
  Receive Date: 20060822
  Receipt Date: 20060822
  Transmission Date: 20061208
  Serious: Yes (Hospitalization)
  Sender: FDA-Public Use
  Company Number: None

PATIENT
  Sex: Male
  Weight: 131.5431 kg

DRUGS (10)
  1. PACLITAXEL [Suspect]
     Indication: SMALL CELL LUNG CANCER STAGE UNSPECIFIED
     Dosage: 75MG/M2 DAY 1 AND DAY 8 IV DRIP
     Route: 041
     Dates: start: 20060612, end: 20060718
  2. IRINOTECAN HCL [Suspect]
     Indication: SMALL CELL LUNG CANCER STAGE UNSPECIFIED
     Dosage: 50 MG/M2 DAY 1 AND DAY 8 IV DRIP
     Route: 041
     Dates: start: 20060612, end: 20060718
  3. XANAX [Concomitant]
  4. DILAUDID [Concomitant]
  5. SLO MAG [Concomitant]
  6. ATIVAN [Concomitant]
  7. ZOFRAN [Concomitant]
  8. PERI-COLACE [Concomitant]
  9. MOM [Concomitant]
  10. IMODIUM [Concomitant]

REACTIONS (11)
  - DECREASED APPETITE [None]
  - DEHYDRATION [None]
  - ELECTROLYTE IMBALANCE [None]
  - FATIGUE [None]
  - GROIN PAIN [None]
  - INFECTION [None]
  - LIVER FUNCTION TEST ABNORMAL [None]
  - MALAISE [None]
  - MENTAL STATUS CHANGES [None]
  - PYREXIA [None]
  - RENAL FAILURE ACUTE [None]
